FAERS Safety Report 13518591 (Version 1)
Quarter: 2017Q2

REPORT INFORMATION
  Report Type: Report from Study
  Country: BE (occurrence: BE)
  Receive Date: 20170505
  Receipt Date: 20170505
  Transmission Date: 20170830
  Serious: Yes (Hospitalization)
  Sender: FDA-Public Use
  Company Number: BE-EMD SERONO-8054794

PATIENT
  Age: 63 Year
  Sex: Male
  Weight: 53 kg

DRUGS (5)
  1. DAFALGAN [Concomitant]
     Active Substance: ACETAMINOPHEN
     Indication: PAIN
     Route: 048
     Dates: start: 20131210
  2. FORLAX [Concomitant]
     Active Substance: POLYETHYLENE GLYCOL 4000
     Indication: CONSTIPATION
     Route: 048
     Dates: start: 20150406
  3. AVELUMAB [Suspect]
     Active Substance: AVELUMAB
     Route: 042
     Dates: start: 20151118
  4. CITRON [Concomitant]
     Indication: NAUSEA
     Route: 048
     Dates: start: 20150406
  5. AVELUMAB [Suspect]
     Active Substance: AVELUMAB
     Indication: HEAD AND NECK CANCER
     Route: 042
     Dates: start: 20150915, end: 20151028

REACTIONS (1)
  - Tongue oedema [Not Recovered/Not Resolved]

NARRATIVE: CASE EVENT DATE: 20151113
